FAERS Safety Report 15778004 (Version 1)
Quarter: 2018Q4

REPORT INFORMATION
  Report Type: Spontaneous
  Country: US (occurrence: US)
  Receive Date: 20181231
  Receipt Date: 20181231
  Transmission Date: 20190205
  Serious: Yes (Disabling)
  Sender: FDA-Public Use
  Company Number: None

PATIENT
  Age: 27 Year
  Sex: Male
  Weight: 54.9 kg

DRUGS (1)
  1. FINASTERIDE 5MG 340B [Suspect]
     Active Substance: FINASTERIDE
     Indication: ANDROGENETIC ALOPECIA
     Dosage: ?          QUANTITY:8 TABLET(S);?
     Route: 048
     Dates: start: 20181221, end: 20181224

REACTIONS (4)
  - Mood swings [None]
  - Crying [None]
  - Nipple pain [None]
  - Gynaecomastia [None]

NARRATIVE: CASE EVENT DATE: 20181224
